FAERS Safety Report 7397913-8 (Version None)
Quarter: 2011Q2

REPORT INFORMATION
  Report Type: 
  Country: None (occurrence: None)
  Receive Date: 20110406
  Receipt Date: 20110325
  Transmission Date: 20111010
  Serious: Yes (Other)
  Sender: FDA-Public Use
  Company Number: PHHO2011US05461

PATIENT
  Sex: Male

DRUGS (12)
  1. AFINITOR [Suspect]
     Dosage: 2.5 MG/DAY, 3 DAYS PER WEEK
     Route: 048
     Dates: start: 20110303
  2. MINOCYCLINE HYDROCHLORIDE [Concomitant]
  3. BETAMETHASONE [Concomitant]
  4. ASPIRIN [Concomitant]
  5. XALATAN [Concomitant]
  6. TUSSIONEX [Concomitant]
  7. AFINITOR [Suspect]
     Indication: METASTATIC MALIGNANT MELANOMA
     Dosage: 5 MG/DAY, 3 DAYS PER WEEK
     Route: 048
     Dates: start: 20101117, end: 20101208
  8. AFINITOR [Suspect]
     Dosage: 5 MG/DAY, 3 DAYS PER WEEK
     Route: 048
     Dates: start: 20101213, end: 20110113
  9. TESSALON [Concomitant]
  10. MULTI-VITAMINS [Concomitant]
  11. LIPITOR [Concomitant]
  12. LISINOPRIL [Concomitant]

REACTIONS (1)
  - CHOLELITHIASIS [None]
